FAERS Safety Report 4447322-6 (Version None)
Quarter: 2004Q3

REPORT INFORMATION
  Report Type: 
  Country: None (occurrence: None)
  Receive Date: 20040813
  Receipt Date: 20040507
  Transmission Date: 20050211
  Serious: No
  Sender: FDA-Public Use
  Company Number: S04-USA-02934-01

PATIENT
  Age: 86 Year
  Sex: Female

DRUGS (5)
  1. NAMENDA [Suspect]
     Indication: DEMENTIA ALZHEIMER'S TYPE
     Dates: start: 20040329
  2. TOPROL-XL [Concomitant]
  3. CELEXA [Concomitant]
  4. BETA BLOCKER (NOS) [Concomitant]
  5. ACE INHIBITOR [Concomitant]

REACTIONS (1)
  - ATAXIA [None]
